FAERS Safety Report 5847872-1 (Version None)
Quarter: 2008Q3

REPORT INFORMATION
  Report Type: 
  Country: None (occurrence: None)
  Receive Date: 20080818
  Receipt Date: 20080811
  Transmission Date: 20090109
  Serious: Yes (Hospitalization)
  Sender: FDA-Public Use
  Company Number: GB-WYE-G01653808

PATIENT
  Age: 49 Year
  Sex: Female

DRUGS (3)
  1. EFFEXOR [Suspect]
     Indication: AFFECTIVE DISORDER
     Dosage: UNKNOWN
     Route: 048
     Dates: start: 20061001
  2. NOVORAPID [Concomitant]
     Dosage: UNKNOWN
  3. LANTUS [Concomitant]
     Dosage: UNKNOWN

REACTIONS (1)
  - PULMONARY EOSINOPHILIA [None]
